FAERS Safety Report 20783626 (Version 1)
Quarter: 2022Q2

REPORT INFORMATION
  Report Type: Spontaneous
  Country: US (occurrence: US)
  Receive Date: 20220504
  Receipt Date: 20220504
  Transmission Date: 20220721
  Serious: No
  Sender: FDA-Public Use
  Company Number: US-NOVARTISTESTPH-NVSC2022US101561

PATIENT
  Sex: Female

DRUGS (1)
  1. COSENTYX [Suspect]
     Active Substance: SECUKINUMAB
     Indication: Product used for unknown indication
     Dosage: 150 MG (2 PENS) (ON COSNTYX FOR LESS THAN A YEAR)
     Route: 065

REACTIONS (4)
  - Accidental exposure to product [Unknown]
  - Intercepted accidental exposure to product by child [Unknown]
  - Device malfunction [Unknown]
  - Inappropriate schedule of product administration [Unknown]
